FAERS Safety Report 6569728-1 (Version None)
Quarter: 2010Q1

REPORT INFORMATION
  Report Type: 
  Country: None (occurrence: None)
  Receive Date: 20100204
  Receipt Date: 20100202
  Transmission Date: 20100710
  Serious: Yes (Death)
  Sender: FDA-Public Use
  Company Number: PHEH2010US01485

PATIENT
  Sex: Female

DRUGS (1)
  1. EXJADE [Suspect]
     Dosage: 1125 MG DAILY
     Route: 048
     Dates: start: 20070110

REACTIONS (4)
  - DISEASE PROGRESSION [None]
  - HEPATIC FAILURE [None]
  - IRON OVERLOAD [None]
  - RIGHT VENTRICULAR FAILURE [None]
